FAERS Safety Report 9342095 (Version 2)
Quarter: 2013Q3

REPORT INFORMATION
  Report Type: Spontaneous
  Country: US (occurrence: US)
  Receive Date: 20130611
  Receipt Date: 20130805
  Transmission Date: 20140515
  Serious: Yes (Other)
  Sender: FDA-Public Use
  Company Number: US-UCBSA-061590

PATIENT
  Age: 50 Year
  Sex: Female
  Weight: 51 kg

DRUGS (4)
  1. CIMZIA [Suspect]
     Indication: CROHN^S DISEASE
     Dates: start: 20120420, end: 201209
  2. PENTASA [Concomitant]
     Indication: CROHN^S DISEASE
     Dosage: START DATE: YEARS 7; FREQUENCY: 4 DAY
  3. XIFAXAN [Concomitant]
     Indication: CROHN^S DISEASE
     Dosage: UNKNOWN DOSE
     Dates: start: 201302, end: 201305
  4. DOXEPIN [Concomitant]
     Indication: CROHN^S DISEASE
     Dosage: START DATE: YEARS

REACTIONS (6)
  - Sinusitis fungal [Recovered/Resolved]
  - Gingival erythema [Recovered/Resolved]
  - Gingival swelling [Unknown]
  - Gingival pain [Not Recovered/Not Resolved]
  - Arthralgia [Recovered/Resolved]
  - Myalgia [Recovered/Resolved]
